FAERS Safety Report 23634066 (Version 1)
Quarter: 2024Q1

REPORT INFORMATION
  Report Type: Spontaneous
  Country: CA (occurrence: CA)
  Receive Date: 20240314
  Receipt Date: 20240314
  Transmission Date: 20240410
  Serious: Yes (Other)
  Sender: FDA-Public Use
  Company Number: CA-PFIZER INC-202400063463

PATIENT
  Age: 55 Year
  Sex: Female

DRUGS (1)
  1. ABRILADA [Suspect]
     Active Substance: ADALIMUMAB-AFZB
     Indication: Hidradenitis
     Dosage: 1 DF, PREFILLED PEN, 160MG W0, 80MG W2 THEN 40MG Q WEEK STARTING W4
     Route: 058
     Dates: start: 20221028

REACTIONS (1)
  - Adrenal gland operation [Unknown]
